FAERS Safety Report 10511926 (Version 1)
Quarter: 2014Q4

REPORT INFORMATION
  Report Type: Spontaneous
  Country: US (occurrence: US)
  Receive Date: 20141010
  Receipt Date: 20141010
  Transmission Date: 20150528
  Serious: Yes (Other)
  Sender: FDA-Public Use
  Company Number: US-US-EMD SERONO, INC.-7326078

PATIENT
  Age: 59 Year
  Sex: Male
  Weight: 95 kg

DRUGS (1)
  1. REBIF [Suspect]
     Active Substance: INTERFERON BETA-1A
     Indication: MULTIPLE SCLEROSIS
     Route: 058

REACTIONS (14)
  - Contusion [Unknown]
  - Vitamin D deficiency [Unknown]
  - Cerebral artery occlusion [Not Recovered/Not Resolved]
  - Drug hypersensitivity [Unknown]
  - Hypercholesterolaemia [Unknown]
  - Hyperlipidaemia [Unknown]
  - Pulmonary mass [Unknown]
  - Erectile dysfunction [Unknown]
  - Basal cell carcinoma [Not Recovered/Not Resolved]
  - Psoriasis [Unknown]
  - Cerebral infarction [Unknown]
  - Seasonal allergy [Unknown]
  - Haemorrhoids [Unknown]
  - Gait disturbance [Unknown]

NARRATIVE: CASE EVENT DATE: 20140901
